FAERS Safety Report 23956024 (Version 1)
Quarter: 2024Q2

REPORT INFORMATION
  Report Type: Spontaneous
  Country: US (occurrence: None)
  Receive Date: 20240607
  Receipt Date: 20240607
  Transmission Date: 20240716
  Serious: Yes (Hospitalization)
  Sender: FDA-Public Use
  Company Number: None

PATIENT
  Age: 78 Year
  Sex: Male
  Weight: 117 kg

DRUGS (3)
  1. LOSARTAN [Suspect]
     Active Substance: LOSARTAN
     Indication: Hypertension
     Dosage: FREQUENCY : DAILY;?
     Route: 048
     Dates: start: 20231031, end: 20240308
  2. LISINOPRIL [Suspect]
     Active Substance: LISINOPRIL
  3. METHOCARBAMOL [Suspect]
     Active Substance: METHOCARBAMOL
     Dates: start: 20160828, end: 20240308

REACTIONS (1)
  - Angioedema [None]

NARRATIVE: CASE EVENT DATE: 20240308
